FAERS Safety Report 4291818-7 (Version None)
Quarter: 2004Q1

REPORT INFORMATION
  Report Type: 
  Country: None (occurrence: None)
  Receive Date: 20040211
  Receipt Date: 20030605
  Transmission Date: 20041129
  Serious: No
  Sender: FDA-Public Use
  Company Number: US-GLAXOSMITHKLINE-A0411256A

PATIENT
  Age: 40 Year
  Sex: Female
  Weight: 47.3 kg

DRUGS (2)
  1. IMITREX [Suspect]
     Indication: MIGRAINE
     Route: 058
  2. NO CONCURRENT MEDICATIONS [Concomitant]

REACTIONS (5)
  - DISSOCIATION [None]
  - DYSARTHRIA [None]
  - EYELID PTOSIS [None]
  - SPEECH DISORDER [None]
  - TREMOR [None]
